FAERS Safety Report 21065836 (Version 1)
Quarter: 2022Q3

REPORT INFORMATION
  Report Type: Spontaneous
  Country: CO (occurrence: CO)
  Receive Date: 20220711
  Receipt Date: 20220711
  Transmission Date: 20221027
  Serious: Yes (Death)
  Sender: FDA-Public Use
  Company Number: CO-PFIZER INC-PV202200018868

PATIENT
  Sex: Male

DRUGS (1)
  1. SUTENT [Suspect]
     Active Substance: SUNITINIB MALATE
     Indication: Renal cancer stage IV
     Dosage: 50 MG, (DAILY, SCHEME 4/2 REST)
     Route: 048
     Dates: start: 202109

REACTIONS (3)
  - Myocardial infarction [Fatal]
  - Haemorrhage [Fatal]
  - Drug intolerance [Fatal]
